FAERS Safety Report 4837761-3 (Version None)
Quarter: 2005Q4

REPORT INFORMATION
  Report Type: 
  Country: None (occurrence: None)
  Receive Date: 20051128
  Receipt Date: 20051004
  Transmission Date: 20060501
  Serious: Yes (Hospitalization, Other)
  Sender: FDA-Public Use
  Company Number: US-MERCK-0510USA03333

PATIENT
  Age: 45 Year
  Sex: Female
  Weight: 49 kg

DRUGS (19)
  1. VIOXX [Suspect]
     Indication: NECK PAIN
     Route: 048
     Dates: start: 20000501, end: 20041101
  2. VIOXX [Suspect]
     Indication: BACK PAIN
     Route: 048
     Dates: start: 20000501, end: 20041101
  3. ASPIRIN [Concomitant]
     Route: 065
  4. NEURONTIN [Concomitant]
     Route: 065
  5. TAGAMET [Concomitant]
     Route: 065
  6. LOPRESSOR [Concomitant]
     Route: 065
  7. ISONIAZID [Concomitant]
     Route: 065
  8. NAPROXEN [Concomitant]
     Route: 065
  9. VICODIN [Concomitant]
     Route: 065
  10. VALIUM [Concomitant]
     Route: 065
  11. PREDNISONE [Concomitant]
     Route: 065
  12. SOMA [Concomitant]
     Route: 065
  13. ANALGESIC OR ANESTHETIC (UNSPECIFIED) [Concomitant]
     Route: 065
  14. CORTICOSTEROIDS (UNSPECIFIED) [Concomitant]
     Route: 065
  15. TYLENOL W/ CODEINE [Concomitant]
     Route: 065
  16. ACETAMINOPHEN [Concomitant]
     Route: 065
  17. CARISOPRODOL [Concomitant]
     Route: 065
  18. TRAMADOL HYDROCHLORIDE [Concomitant]
     Route: 065
  19. [THERAPY UNSPECIFIED] [Concomitant]
     Route: 065

REACTIONS (6)
  - CARDIAC DISORDER [None]
  - GASTRIC ULCER [None]
  - HEART RATE INCREASED [None]
  - HYPERTENSION [None]
  - MENISCUS LESION [None]
  - MYOCARDIAL INFARCTION [None]
